FAERS Safety Report 4514043-0 (Version None)
Quarter: 2004Q4

REPORT INFORMATION
  Report Type: 
  Country: None (occurrence: None)
  Receive Date: 20041130
  Receipt Date: 20041027
  Transmission Date: 20050328
  Serious: No
  Sender: FDA-Public Use
  Company Number: US-GLAXOSMITHKLINE-A0531529A

PATIENT
  Age: 54 Year
  Sex: Female
  Weight: 55.5 kg

DRUGS (5)
  1. WELLBUTRIN [Suspect]
     Indication: DEPRESSION
     Dosage: 200MG PER DAY
     Route: 048
     Dates: start: 20020101
  2. KLONOPIN [Concomitant]
     Indication: ANXIETY
     Dosage: .5MCG AT NIGHT
     Route: 048
     Dates: start: 20020101
  3. VITAMIN B COMPLEX CAP [Concomitant]
  4. CITRACAL [Concomitant]
  5. VITAMIN E [Concomitant]

REACTIONS (1)
  - LIPASE INCREASED [None]
